FAERS Safety Report 25040867 (Version 1)
Quarter: 2025Q1

REPORT INFORMATION
  Report Type: Report from Study
  Country: US (occurrence: US)
  Receive Date: 20250305
  Receipt Date: 20250305
  Transmission Date: 20250409
  Serious: Yes (Hospitalization, Other)
  Sender: ACADIA PHARMACEUTICALS
  Company Number: US-ACADIA PHARMACEUTICALS INC.-ACA-2025-TRF-002265

PATIENT
  Age: 35 Year
  Sex: Female

DRUGS (6)
  1. DAYBUE [Suspect]
     Active Substance: TROFINETIDE
     Indication: Product used for unknown indication
     Route: 065
     Dates: start: 20240122
  2. DAYBUE [Suspect]
     Active Substance: TROFINETIDE
     Route: 065
     Dates: start: 20240125
  3. DAYBUE [Suspect]
     Active Substance: TROFINETIDE
     Route: 065
  4. DAYBUE [Suspect]
     Active Substance: TROFINETIDE
     Route: 065
  5. DAYBUE [Suspect]
     Active Substance: TROFINETIDE
     Route: 065
  6. DAYBUE [Suspect]
     Active Substance: TROFINETIDE
     Route: 065

REACTIONS (4)
  - Intestinal perforation [Unknown]
  - Diverticulitis [Unknown]
  - Diarrhoea [Not Recovered/Not Resolved]
  - Intentional underdose [Unknown]

NARRATIVE: CASE EVENT DATE: 20240125
